FAERS Safety Report 5362660-0 (Version None)
Quarter: 2007Q2

REPORT INFORMATION
  Report Type: 
  Country: None (occurrence: None)
  Receive Date: 20070619
  Receipt Date: 20070614
  Transmission Date: 20071010
  Serious: Yes (Hospitalization)
  Sender: FDA-Public Use
  Company Number: FR-ABBOTT-07P-056-0371496-00

PATIENT
  Age: 51 Year
  Sex: Male

DRUGS (4)
  1. DEPAKOTE [Suspect]
     Indication: MANIA
     Route: 048
     Dates: start: 20070501, end: 20070503
  2. ALIMEMAZINE TARTRATE [Suspect]
     Indication: MANIA
     Route: 048
     Dates: start: 20070501, end: 20070503
  3. OLANZAPINE [Suspect]
     Indication: MANIA
     Route: 048
     Dates: start: 20070501, end: 20070503
  4. INSULIN [Concomitant]
     Indication: DIABETES MELLITUS INSULIN-DEPENDENT

REACTIONS (1)
  - KETOACIDOSIS [None]
